FAERS Safety Report 18713907 (Version 7)
Quarter: 2024Q1

REPORT INFORMATION
  Report Type: Report from Study
  Country: CA (occurrence: CA)
  Receive Date: 20210107
  Receipt Date: 20240223
  Transmission Date: 20240410
  Serious: Yes (Hospitalization, Other)
  Sender: FDA-Public Use
  Company Number: CA-JAZZ-2021-CA-000062

PATIENT
  Age: 59 Year
  Sex: Female

DRUGS (6)
  1. XYREM [Suspect]
     Active Substance: SODIUM OXYBATE
     Indication: Cataplexy
     Dosage: 2.25 GRAM, BID
     Route: 048
     Dates: start: 20120522, end: 201206
  2. XYREM [Suspect]
     Active Substance: SODIUM OXYBATE
     Indication: Narcolepsy
     Dosage: 3 GRAM, BID
     Route: 048
     Dates: start: 201206, end: 2012
  3. XYREM [Suspect]
     Active Substance: SODIUM OXYBATE
     Dosage: 3.75 GRAM, BID
     Route: 048
     Dates: start: 2012, end: 201207
  4. XYREM [Suspect]
     Active Substance: SODIUM OXYBATE
     Dosage: 4 GRAM, BID
     Route: 048
     Dates: start: 201207, end: 2012
  5. XYREM [Suspect]
     Active Substance: SODIUM OXYBATE
     Dosage: 4.5 GRAM, BID
     Route: 048
     Dates: start: 201208, end: 202101
  6. XYREM [Suspect]
     Active Substance: SODIUM OXYBATE
     Dosage: 4.5 GRAM, BID
     Route: 048
     Dates: start: 201208

REACTIONS (4)
  - Endometrial cancer stage I [Recovered/Resolved]
  - Basal ganglia haemorrhage [Recovered/Resolved]
  - Intentional product use issue [Unknown]
  - Product administration interrupted [Unknown]

NARRATIVE: CASE EVENT DATE: 20230714
